FAERS Safety Report 9866433 (Version 1)
Quarter: 2014Q1

REPORT INFORMATION
  Report Type: Report from Study
  Country: US (occurrence: US)
  Receive Date: 20140204
  Receipt Date: 20140204
  Transmission Date: 20141002
  Serious: Yes (Other)
  Sender: FDA-Public Use
  Company Number: US-ROCHE-1342312

PATIENT
  Sex: Male
  Weight: 65.2 kg

DRUGS (8)
  1. PEGASYS [Suspect]
     Indication: HEPATITIS C
     Route: 065
  2. COPEGUS [Suspect]
     Indication: HEPATITIS C
     Route: 065
  3. CELEXA (UNITED STATES) [Concomitant]
     Indication: DEPRESSION
     Route: 065
  4. KEFLEX [Concomitant]
  5. BENADRYL (UNITED STATES) [Concomitant]
     Dosage: PRN-25 MG CAPSULE
     Route: 048
  6. NOVOLIN [Concomitant]
     Dosage: MORNING-INJECT INTO THE SKIN
     Route: 065
  7. NOVOLIN [Concomitant]
     Dosage: NIGHTLY-INJECT INTO THE SKIN
     Route: 065
  8. LISINOPRIL [Concomitant]
     Dosage: MORNING
     Route: 065

REACTIONS (2)
  - Thrombocytopenia [Unknown]
  - Leukopenia [Unknown]
